FAERS Safety Report 4371108-4 (Version None)
Quarter: 2004Q2

REPORT INFORMATION
  Report Type: 
  Country: None (occurrence: None)
  Receive Date: 20040601
  Receipt Date: 20040524
  Transmission Date: 20050107
  Serious: Yes (Disabling)
  Sender: FDA-Public Use
  Company Number: 2004-05-1804

PATIENT
  Age: 61 Year
  Sex: Female
  Weight: 62 kg

DRUGS (4)
  1. VIRAFERONPEG [Suspect]
     Indication: HEPATITIS C
     Dosage: SEE IMAGE
     Route: 058
     Dates: start: 20030902, end: 20040310
  2. VIRAFERONPEG [Suspect]
     Indication: HEPATITIS C
     Dosage: SEE IMAGE
     Route: 058
     Dates: end: 20040310
  3. VIRAFERONPEG [Suspect]
     Indication: HEPATITIS C
     Dosage: SEE IMAGE
     Route: 058
     Dates: start: 20030902
  4. REBETOL [Suspect]
     Indication: HEPATITIS C
     Dosage: SEE IMAGE
     Route: 048
     Dates: start: 20030902

REACTIONS (10)
  - ANTIBODY TEST POSITIVE [None]
  - EYELID PTOSIS [None]
  - INTERCOSTAL NEURALGIA [None]
  - MASTICATION DISORDER [None]
  - MYASTHENIC SYNDROME [None]
  - PLAGUE [None]
  - SMOOTH MUSCLE ANTIBODY POSITIVE [None]
  - THYMUS DISORDER [None]
  - VISUAL DISTURBANCE [None]
  - WEIGHT INCREASED [None]
